FAERS Safety Report 21238027 (Version 2)
Quarter: 2022Q4

REPORT INFORMATION
  Report Type: Report from Study
  Country: HN (occurrence: HN)
  Receive Date: 20220822
  Receipt Date: 20221004
  Transmission Date: 20230113
  Serious: Yes (Other)
  Sender: FDA-Public Use
  Company Number: HN-NOVARTISPH-NVSC2022HN186243

PATIENT
  Age: 67 Year
  Sex: Female
  Weight: 58.96 kg

DRUGS (2)
  1. EXFORGE HCT [Suspect]
     Active Substance: AMLODIPINE BESYLATE\HYDROCHLOROTHIAZIDE\VALSARTAN
     Indication: Headache
     Dosage: 10/25/320 MG (STOPPED APPROXIMATELY Y 4 MONTHS AGO)
     Route: 065
     Dates: start: 202010, end: 202109
  2. EXFORGE HCT [Suspect]
     Active Substance: AMLODIPINE BESYLATE\HYDROCHLOROTHIAZIDE\VALSARTAN
     Indication: Hypertension
     Dosage: UNK
     Route: 065
     Dates: start: 202204

REACTIONS (4)
  - Asphyxia [Recovered/Resolved]
  - Feeling hot [Recovered/Resolved]
  - Headache [Recovered/Resolved]
  - Off label use [Recovered/Resolved]

NARRATIVE: CASE EVENT DATE: 20210901
